FAERS Safety Report 24346049 (Version 2)
Quarter: 2024Q4

REPORT INFORMATION
  Report Type: Spontaneous
  Country: DE (occurrence: DE)
  Receive Date: 20240921
  Receipt Date: 20241011
  Transmission Date: 20250115
  Serious: Yes (Other)
  Sender: ABBVIE
  Company Number: DE-ABBVIE-5930259

PATIENT
  Sex: Male
  Weight: 66 kg

DRUGS (2)
  1. GLECAPREVIR\PIBRENTASVIR [Suspect]
     Active Substance: GLECAPREVIR\PIBRENTASVIR
     Indication: Chronic hepatitis C
     Dosage: TIME INTERVAL: 0.33333333 DAYS: 100/40G
     Route: 048
     Dates: start: 20240715, end: 20240821
  2. INSULIN NOS [Suspect]
     Active Substance: INSULIN NOS
     Indication: Product used for unknown indication
     Route: 065
     Dates: start: 2024

REACTIONS (7)
  - Pancreatitis necrotising [Unknown]
  - Type 1 diabetes mellitus [Unknown]
  - Acute kidney injury [Unknown]
  - Diabetes mellitus [Unknown]
  - Dizziness [Unknown]
  - General physical health deterioration [Unknown]
  - Thirst [Unknown]

NARRATIVE: CASE EVENT DATE: 20240101
